FAERS Safety Report 5854997-3 (Version None)
Quarter: 2008Q3

REPORT INFORMATION
  Report Type: 
  Country: None (occurrence: None)
  Receive Date: 20080822
  Receipt Date: 20080505
  Transmission Date: 20090109
  Serious: No
  Sender: FDA-Public Use
  Company Number: US-ABBOTT-08P-163-0450422-00

PATIENT
  Sex: Female
  Weight: 88.076 kg

DRUGS (2)
  1. SYNTHROID [Suspect]
     Indication: HYPOTHYROIDISM
     Route: 048
     Dates: end: 20071101
  2. LIOTHYRONINE SODIUM [Suspect]
     Indication: HYPOTHYROIDISM

REACTIONS (13)
  - ANOREXIA [None]
  - BRADYPHRENIA [None]
  - DYSPNOEA [None]
  - FATIGUE [None]
  - FIBROMYALGIA [None]
  - GASTRIC DISORDER [None]
  - GASTROOESOPHAGEAL REFLUX DISEASE [None]
  - HYPERTENSION [None]
  - MOBILITY DECREASED [None]
  - PRESYNCOPE [None]
  - RASH [None]
  - SLEEP APNOEA SYNDROME [None]
  - UNEVALUABLE EVENT [None]
